FAERS Safety Report 9035892 (Version 1)
Quarter: 2013Q1

REPORT INFORMATION
  Report Type: Report from Study
  Country: US (occurrence: US)
  Receive Date: 20130129
  Receipt Date: 20130129
  Transmission Date: 20140127
  Serious: No
  Sender: FDA-Public Use
  Company Number: US-ABBOTT-12P-163-0925943-00

PATIENT
  Sex: Female

DRUGS (3)
  1. HUMIRA 40 MG/0.8 ML PEN [Suspect]
     Indication: CROHN^S DISEASE
     Dosage: 160MG DAY 1 (OR 80MG DAILY ON DAYS 1 AND 2)
     Route: 058
     Dates: start: 201112
  2. HUMIRA 40 MG/0.8 ML PEN [Suspect]
     Dosage: DAY 15
     Route: 058
  3. HUMIRA 40 MG/0.8 ML PEN [Suspect]
     Dosage: DAY 29 BEGIN 40MG EVERY 2 WEEKS
     Route: 058

REACTIONS (3)
  - Diarrhoea [Recovering/Resolving]
  - Viral upper respiratory tract infection [Unknown]
  - Muscle spasms [Unknown]
